FAERS Safety Report 15333533 (Version 1)
Quarter: 2018Q3

REPORT INFORMATION
  Report Type: Spontaneous
  Country: US (occurrence: US)
  Receive Date: 20180830
  Receipt Date: 20180830
  Transmission Date: 20181010
  Serious: No
  Sender: FDA-Public Use
  Company Number: US-TEVA-2018-US-947996

PATIENT
  Age: 61 Year
  Sex: Male

DRUGS (1)
  1. FENTANYL. [Suspect]
     Active Substance: FENTANYL
     Indication: PAIN
     Dosage: 75 MCG/HR
     Route: 062

REACTIONS (6)
  - Product adhesion issue [Unknown]
  - Irritability [Unknown]
  - Insomnia [Unknown]
  - Mood altered [Unknown]
  - Pain [Unknown]
  - Drug ineffective for unapproved indication [Unknown]
